FAERS Safety Report 19428998 (Version 1)
Quarter: 2021Q2

REPORT INFORMATION
  Report Type: Spontaneous
  Country: US (occurrence: US)
  Receive Date: 20210617
  Receipt Date: 20210617
  Transmission Date: 20210717
  Serious: Yes (Death, Other)
  Sender: FDA-Public Use
  Company Number: US-GLAXOSMITHKLINE-US2021GSK130348

PATIENT
  Sex: Male

DRUGS (4)
  1. ZANTAC [Suspect]
     Active Substance: RANITIDINE HYDROCHLORIDE
     Indication: PRODUCT USED FOR UNKNOWN INDICATION
     Dosage: UNKNOWN AT THIS TIME
     Route: 065
     Dates: start: 200406, end: 201310
  2. ZANTAC [Suspect]
     Active Substance: RANITIDINE HYDROCHLORIDE
     Indication: PRODUCT USED FOR UNKNOWN INDICATION
     Dosage: UNKNOWN AT THIS TIME
     Route: 065
     Dates: start: 200406, end: 201310
  3. ZANTAC [Suspect]
     Active Substance: RANITIDINE HYDROCHLORIDE
     Indication: PRODUCT USED FOR UNKNOWN INDICATION
     Dosage: UNKNOWN AT THIS TIME
     Route: 065
     Dates: start: 200406, end: 201310
  4. RANITIDINE CAPSULE [Suspect]
     Active Substance: RANITIDINE
     Indication: PRODUCT USED FOR UNKNOWN INDICATION
     Dosage: UNKNOWN AT THIS TIME
     Route: 065
     Dates: start: 200406, end: 201310

REACTIONS (5)
  - Hepatic cancer [Unknown]
  - Gastric cancer [Unknown]
  - Neoplasm malignant [Fatal]
  - Oesophageal carcinoma [Unknown]
  - Throat cancer [Unknown]
